FAERS Safety Report 9572389 (Version 1)
Quarter: 2013Q3

REPORT INFORMATION
  Report Type: Spontaneous
  Country: DE (occurrence: None)
  Receive Date: 20130927
  Receipt Date: 20130927
  Transmission Date: 20140515
  Serious: Yes (Hospitalization)
  Sender: FDA-Public Use
  Company Number: INT_00313_2013

PATIENT
  Age: 59 Year
  Sex: Male

DRUGS (6)
  1. MEROPENEM [Suspect]
     Indication: CENTRAL VENOUS CATHETER REMOVAL
     Route: 042
     Dates: start: 20130906, end: 20130911
  2. MEROPENEM [Suspect]
     Indication: DEVICE RELATED INFECTION
     Route: 042
     Dates: start: 20130906, end: 20130911
  3. KREON [Concomitant]
  4. MORPHINE [Concomitant]
  5. LANTUS [Concomitant]
  6. INSULIN HUMAN [Concomitant]

REACTIONS (1)
  - Hyperkalaemia [None]
